FAERS Safety Report 4781640-7 (Version None)
Quarter: 2005Q3

REPORT INFORMATION
  Report Type: 
  Country: None (occurrence: None)
  Receive Date: 20050927
  Receipt Date: 20050914
  Transmission Date: 20060218
  Serious: Yes (Congenital Anomaly)
  Sender: FDA-Public Use
  Company Number: FR_050907116

PATIENT
  Age: 1 Day

DRUGS (3)
  1. HUMULIN R [Suspect]
     Route: 064
     Dates: start: 20040801, end: 20050411
  2. HUMULIN N [Suspect]
     Route: 064
     Dates: start: 20040801, end: 20050411
  3. HUMALOG [Suspect]
     Route: 064
     Dates: start: 20040725, end: 20040801

REACTIONS (5)
  - CONGENITAL AORTIC VALVE INCOMPETENCE [None]
  - DRUG EXPOSURE DURING PREGNANCY [None]
  - TRANSPOSITION OF THE GREAT VESSELS [None]
  - TWIN PREGNANCY [None]
  - VENTRICULAR SEPTAL DEFECT [None]
